FAERS Safety Report 11505804 (Version 1)
Quarter: 2015Q3

REPORT INFORMATION
  Report Type: Spontaneous
  Country: US (occurrence: US)
  Receive Date: 20150915
  Receipt Date: 20150915
  Transmission Date: 20151125
  Serious: No
  Sender: FDA-Public Use
  Company Number: US-ROCHE-769343

PATIENT
  Age: 43 Year
  Sex: Female

DRUGS (2)
  1. RIBASPHERE RIBAPAK [Suspect]
     Active Substance: RIBAVIRIN
     Indication: HEPATITIS C
     Dosage: DIVIDED DOSES. RIBAPAK RIBASPHERE
     Route: 048
  2. PEGASYS [Suspect]
     Active Substance: PEGINTERFERON ALFA-2A
     Indication: HEPATITIS C
     Dosage: FORM : PRE FILLED SYRINGE.
     Route: 058

REACTIONS (6)
  - Dry skin [Unknown]
  - Dactylitis [Unknown]
  - Blister [Unknown]
  - Fatigue [Recovered/Resolved]
  - Rash erythematous [Unknown]
  - Injection site reaction [Unknown]

NARRATIVE: CASE EVENT DATE: 20110131
